FAERS Safety Report 7915390-2 (Version None)
Quarter: 2011Q4

REPORT INFORMATION
  Report Type: 
  Country: None (occurrence: None)
  Receive Date: 20111115
  Receipt Date: 20111110
  Transmission Date: 20120403
  Serious: Yes (Other)
  Sender: FDA-Public Use
  Company Number: PHEH2011US009231

PATIENT
  Sex: Female

DRUGS (1)
  1. GILENYA [Suspect]
     Indication: MULTIPLE SCLEROSIS
     Dosage: 0.5 MG, QD
     Route: 048
     Dates: start: 20110714

REACTIONS (4)
  - SKIN INFECTION [None]
  - GASTROOESOPHAGEAL REFLUX DISEASE [None]
  - SKIN LESION [None]
  - ONYCHOMADESIS [None]
